FAERS Safety Report 4467302-4 (Version None)
Quarter: 2004Q4

REPORT INFORMATION
  Report Type: 
  Country: None (occurrence: None)
  Receive Date: 20041006
  Receipt Date: 20040929
  Transmission Date: 20050328
  Serious: Yes (Other)
  Sender: FDA-Public Use
  Company Number: GB-GLAXOSMITHKLINE-B0346653A

PATIENT
  Age: 30 Year
  Sex: Female

DRUGS (1)
  1. SEROXAT [Suspect]
     Indication: ANXIETY
     Dosage: 50MG PER DAY
     Route: 048
     Dates: start: 19960101

REACTIONS (5)
  - ANXIETY [None]
  - ARRHYTHMIA [None]
  - HALLUCINATION [None]
  - PALPITATIONS [None]
  - SELF MUTILATION [None]
